FAERS Safety Report 8185679-3 (Version None)
Quarter: 2012Q1

REPORT INFORMATION
  Report Type: 
  Country: None (occurrence: None)
  Receive Date: 20120305
  Receipt Date: 20120228
  Transmission Date: 20120608
  Serious: Yes (Hospitalization, Other)
  Sender: FDA-Public Use
  Company Number: US-BAYER-2012-021190

PATIENT
  Age: 62 Year
  Sex: Female
  Weight: 64.853 kg

DRUGS (24)
  1. TRASYLOL [Suspect]
     Indication: CORONARY ARTERY BYPASS
     Dosage: 200 ML, PUMP PRIME
     Route: 042
     Dates: start: 20050404, end: 20050404
  2. LASIX [Concomitant]
  3. CARDIOPLEGIA [Concomitant]
     Dosage: UNK
     Dates: start: 20050404, end: 20050404
  4. COZAAR [Concomitant]
  5. VANCOMYCIN [Concomitant]
     Dosage: 1 G, UNK
     Dates: start: 20050404, end: 20050404
  6. MIDAZOLAM [Concomitant]
     Dosage: UNK
     Dates: start: 20050404, end: 20050404
  7. LIDOCAINE [Concomitant]
     Dosage: UNK
     Dates: start: 20050404, end: 20050404
  8. MILRINONE [Concomitant]
     Dosage: UNK
     Dates: start: 20050404, end: 20050404
  9. PEPCID [Concomitant]
     Dosage: 20 MG, UNK
  10. ZOCOR [Concomitant]
  11. HEPARIN [Concomitant]
     Dosage: UNK G, UNK
     Dates: start: 20050404, end: 20050404
  12. MANNITOL [Concomitant]
     Dosage: 25 G, UNK
     Dates: start: 20050404, end: 20050404
  13. PAPAVERINE [PAPAVERINE] [Concomitant]
     Dosage: 20 CC
     Dates: start: 20050404, end: 20050404
  14. ETOMIDATE [Concomitant]
     Dosage: UNK
     Dates: start: 20050404, end: 20050404
  15. AMIODARONE HCL [Concomitant]
     Dosage: UNK
     Dates: start: 20050404, end: 20050404
  16. TRASYLOL [Suspect]
     Dosage: 200 ML LOADING DOSE
     Route: 042
     Dates: start: 20050404, end: 20050404
  17. TRASYLOL [Suspect]
     Dosage: 50 CC/HR CONTINOUS
     Route: 042
     Dates: start: 20050404, end: 20050404
  18. GLUCOTROL XL [Concomitant]
     Dosage: 5 MG, QD
  19. CONTRAST MEDIA [Concomitant]
     Indication: CATHETERISATION CARDIAC
     Dosage: UNK
     Dates: start: 20050313
  20. LISINOPRIL [Concomitant]
     Dosage: 40 MG, BID
  21. FENTANYL [Concomitant]
     Dosage: UNK
     Dates: start: 20050404, end: 20050404
  22. DECADRON [Concomitant]
     Dosage: 20 MG, UNK
     Dates: start: 20050404, end: 20050404
  23. CARDIOLITE [Concomitant]
     Indication: STRESS
     Dosage: UNK
     Dates: start: 20050316
  24. MUCOMYST [Concomitant]
     Dosage: UNK
     Dates: start: 20050329

REACTIONS (2)
  - RENAL FAILURE ACUTE [None]
  - MENTAL STATUS CHANGES [None]
